FAERS Safety Report 11416489 (Version 2)
Quarter: 2015Q3

REPORT INFORMATION
  Report Type: Spontaneous
  Country: US (occurrence: US)
  Receive Date: 20150825
  Receipt Date: 20150831
  Transmission Date: 20151125
  Serious: Yes (Hospitalization)
  Sender: FDA-Public Use
  Company Number: US-PFIZER INC-2015282492

PATIENT
  Age: 24 Year
  Sex: Female
  Weight: 91 kg

DRUGS (1)
  1. PREMARIN [Suspect]
     Active Substance: ESTROGENS, CONJUGATED
     Dosage: UNK

REACTIONS (6)
  - Thrombosis [Unknown]
  - Anaemia [Not Recovered/Not Resolved]
  - Uterine leiomyoma [Unknown]
  - Vaginal haemorrhage [Unknown]
  - Condition aggravated [Not Recovered/Not Resolved]
  - Product use issue [Unknown]
